FAERS Safety Report 4874740-4 (Version None)
Quarter: 2006Q1

REPORT INFORMATION
  Report Type: 
  Country: None (occurrence: None)
  Receive Date: 20060103
  Receipt Date: 20060103
  Transmission Date: 20060701
  Serious: Yes (Hospitalization, Other)
  Sender: FDA-Public Use
  Company Number: None

PATIENT
  Sex: Male
  Weight: 79 kg

DRUGS (9)
  1. MELPHALAN [Suspect]
     Indication: MULTIPLE MYELOMA
     Dosage: SEE IMAGE
     Route: 042
     Dates: start: 20050907
  2. NEUPOGEN [Suspect]
     Dosage: SEE IMAGE
     Route: 058
  3. NEUPOGEN [Concomitant]
  4. ACCUPRIL [Concomitant]
  5. ATTENOLOL [Concomitant]
  6. AVANDIA [Concomitant]
  7. ENTERIC ASPIRIN [Concomitant]
  8. ETHYOL [Concomitant]
  9. K-DUR 10 [Concomitant]

REACTIONS (3)
  - CAMPYLOBACTER INTESTINAL INFECTION [None]
  - COLONOSCOPY ABNORMAL [None]
  - GRAFT VERSUS HOST DISEASE [None]
